FAERS Safety Report 11104287 (Version 2)
Quarter: 2015Q3

REPORT INFORMATION
  Report Type: Spontaneous
  Country: US (occurrence: US)
  Receive Date: 20150511
  Receipt Date: 20150820
  Transmission Date: 20151125
  Serious: Yes (Other)
  Sender: FDA-Public Use
  Company Number: US-CELGENEUS-USA-2015046690

PATIENT
  Age: 12 Year
  Sex: Male
  Weight: 30.42 kg

DRUGS (10)
  1. THALOMID [Suspect]
     Active Substance: THALIDOMIDE
     Indication: MEDULLOBLASTOMA
  2. CLINDAMYCIN PHOSPHATE. [Concomitant]
     Active Substance: CLINDAMYCIN PHOSPHATE
     Indication: PRODUCT USED FOR UNKNOWN INDICATION
     Route: 065
  3. DEXAMETHASONE. [Concomitant]
     Active Substance: DEXAMETHASONE
     Indication: MEDULLOBLASTOMA
     Route: 065
  4. THALOMID [Suspect]
     Active Substance: THALIDOMIDE
     Indication: OFF LABEL USE
  5. THALOMID [Suspect]
     Active Substance: THALIDOMIDE
     Indication: BRAIN NEOPLASM MALIGNANT
     Dosage: 100 MILLIGRAM
     Route: 048
     Dates: start: 20140911
  6. ETOPOSIDE. [Concomitant]
     Active Substance: ETOPOSIDE
     Indication: MEDULLOBLASTOMA
     Route: 048
  7. CYCLOPHOSPHAMIDE. [Concomitant]
     Active Substance: CYCLOPHOSPHAMIDE
     Indication: MEDULLOBLASTOMA
     Dosage: 100 MILLIGRAM
     Route: 048
  8. CELECOXIB. [Concomitant]
     Active Substance: CELECOXIB
     Indication: MEDULLOBLASTOMA
     Dosage: 40 MILLIGRAM
     Route: 048
  9. FENOFIBRATE. [Concomitant]
     Active Substance: FENOFIBRATE
     Indication: MEDULLOBLASTOMA
     Route: 048
  10. CYTARABINE. [Concomitant]
     Active Substance: CYTARABINE
     Indication: MEDULLOBLASTOMA
     Route: 065

REACTIONS (3)
  - Gastroenteritis viral [Recovered/Resolved]
  - Urinary tract infection [Recovered/Resolved]
  - Full blood count decreased [Not Recovered/Not Resolved]

NARRATIVE: CASE EVENT DATE: 201409
